FAERS Safety Report 6015091-4 (Version None)
Quarter: 2008Q4

REPORT INFORMATION
  Report Type: 
  Country: None (occurrence: None)
  Receive Date: 20081222
  Receipt Date: 20081211
  Transmission Date: 20090506
  Serious: Yes (Hospitalization, Other)
  Sender: FDA-Public Use
  Company Number: JP-BRISTOL-MYERS SQUIBB COMPANY-14427371

PATIENT
  Age: 66 Year
  Sex: Female

DRUGS (13)
  1. ABILIFY [Suspect]
     Indication: SCHIZOPHRENIA
     Dosage: 3MG:26APR08-02MAY08(7D) 6MG:03MAY08-09MAY08(7D) 12MG:10MAY08-28JUL08(80D) DISCONTINUED ON 29JUL08
     Route: 048
     Dates: start: 20080426, end: 20080728
  2. SERENACE [Suspect]
     Indication: SCHIZOPHRENIA
     Dosage: FORM = INJ. DISCONTINUED ON 29JUL08
     Route: 030
     Dates: start: 20080712, end: 20080728
  3. VALERIN [Concomitant]
     Dates: end: 20080728
  4. CARBAMAZEPINE [Concomitant]
     Dates: end: 20080728
  5. RIVOTRIL [Concomitant]
     Dates: end: 20080728
  6. CIRCANETTEN [Concomitant]
     Dosage: FORMULATION: TAB
     Dates: end: 20080728
  7. CEREKINON [Concomitant]
     Dates: end: 20080728
  8. FERO-GRADUMET [Concomitant]
     Dates: end: 20080728
  9. HALOSTEN [Concomitant]
     Dates: start: 20071103, end: 20080728
  10. SENNA [Concomitant]
     Dates: start: 20071103, end: 20080728
  11. MAGLAX [Concomitant]
     Dates: start: 20071103, end: 20080728
  12. BENZALIN [Concomitant]
     Dates: start: 20071103, end: 20080728
  13. LENDORMIN [Concomitant]
     Dates: start: 20071103, end: 20080728

REACTIONS (3)
  - AGITATION [None]
  - ILEUS [None]
  - THINKING ABNORMAL [None]
